FAERS Safety Report 5158976-3 (Version None)
Quarter: 2006Q4

REPORT INFORMATION
  Report Type: 
  Country: None (occurrence: None)
  Receive Date: 20061128
  Receipt Date: 20060928
  Transmission Date: 20070319
  Serious: Yes (Other)
  Sender: FDA-Public Use
  Company Number: US-BRISTOL-MYERS SQUIBB COMPANY-13524970

PATIENT
  Age: 58 Year
  Sex: Female

DRUGS (6)
  1. TAXOL [Suspect]
     Indication: BREAST CANCER
     Route: 042
     Dates: start: 20060901
  2. CLOZARIL [Concomitant]
  3. CLOZARIL [Concomitant]
  4. KLONOPIN [Concomitant]
  5. ALBUTEROL [Concomitant]
  6. GEODON [Concomitant]

REACTIONS (2)
  - GRANULOCYTOPENIA [None]
  - LEUKOPENIA [None]
